FAERS Safety Report 13859424 (Version 1)
Quarter: 2017Q3

REPORT INFORMATION
  Report Type: Spontaneous
  Country: US (occurrence: US)
  Receive Date: 20170811
  Receipt Date: 20170811
  Transmission Date: 20171127
  Serious: No
  Sender: FDA-Public Use
  Company Number: US-PERRIGO-17US023856

PATIENT
  Age: 77 Year
  Sex: Female
  Weight: 33.11 kg

DRUGS (4)
  1. LORATADINE. [Suspect]
     Active Substance: LORATADINE
     Indication: COUGH
  2. LORATADINE. [Suspect]
     Active Substance: LORATADINE
     Indication: MYCOBACTERIUM AVIUM COMPLEX INFECTION
     Dosage: 1/2 TABLET, BID
     Route: 048
     Dates: start: 20170521
  3. LORATADINE. [Suspect]
     Active Substance: LORATADINE
     Indication: SNEEZING
  4. LORATADINE. [Suspect]
     Active Substance: LORATADINE
     Indication: RHINORRHOEA

REACTIONS (2)
  - Off label use [Unknown]
  - Wrong technique in product usage process [Unknown]

NARRATIVE: CASE EVENT DATE: 20170521
